FAERS Safety Report 18206485 (Version 1)
Quarter: 2020Q3

REPORT INFORMATION
  Report Type: Spontaneous
  Country: FR (occurrence: FR)
  Receive Date: 20200828
  Receipt Date: 20200828
  Transmission Date: 20201103
  Serious: Yes (Hospitalization)
  Sender: FDA-Public Use
  Company Number: FR-SUN PHARMACEUTICAL INDUSTRIES LTD-2020RR-259275

PATIENT
  Age: 82 Year
  Sex: Female
  Weight: 60 kg

DRUGS (3)
  1. SERESTA 10 MG, COMPRIME [Concomitant]
     Active Substance: OXAZEPAM
     Indication: ANXIETY
     Dosage: 40 MILLIGRAM, DAILY
     Route: 048
  2. ZOPICLONE [Concomitant]
     Active Substance: ZOPICLONE
     Indication: INSOMNIA
     Dosage: 3.75 MILLIGRAM, DAILY
     Route: 048
     Dates: start: 20200530
  3. CITALOPRAM [Suspect]
     Active Substance: CITALOPRAM HYDROBROMIDE
     Indication: DEPRESSION
     Dosage: 20 MILLIGRAM, DAILY
     Route: 048
     Dates: start: 20200530, end: 20200604

REACTIONS (3)
  - Hyponatraemia [Recovered/Resolved]
  - Disorientation [Recovered/Resolved]
  - Confusional state [Recovered/Resolved]

NARRATIVE: CASE EVENT DATE: 202006
